FAERS Safety Report 7580251-8 (Version None)
Quarter: 2011Q2

REPORT INFORMATION
  Report Type: 
  Country: None (occurrence: None)
  Receive Date: 20110629
  Receipt Date: 20110620
  Transmission Date: 20111010
  Serious: Yes (Hospitalization)
  Sender: FDA-Public Use
  Company Number: US-AMGEN-USACT2011031478

PATIENT
  Age: 40 Year
  Sex: Female

DRUGS (6)
  1. DOXORUBICIN HCL [Concomitant]
     Indication: BREAST CANCER
     Dosage: 60 MG/M2, Q2WK
     Route: 042
     Dates: start: 20100304, end: 20100715
  2. FILGRASTIM [Suspect]
     Indication: BREAST CANCER
     Dosage: 5 A?G/KG, Q2WK
     Route: 058
     Dates: start: 20100304
  3. PEGFILGRASTIM [Suspect]
     Indication: BREAST CANCER
     Dosage: 6 MG, Q2WK
     Route: 058
     Dates: start: 20100304
  4. PACLITAXEL [Concomitant]
     Indication: BREAST CANCER
     Dosage: 80 MG/M2, Q2WK
     Route: 042
     Dates: start: 20100304, end: 20100715
  5. BEVACIZUMAB [Concomitant]
     Indication: BREAST CANCER
     Dosage: UNK UNK, BLINDED
     Route: 042
     Dates: start: 20100304, end: 20100701
  6. CYCLOPHOSPHAMIDE [Concomitant]
     Indication: BREAST CANCER
     Dosage: 610 MG/M2, Q2WK
     Route: 042
     Dates: start: 20100304, end: 20100715

REACTIONS (5)
  - HYPOXIA [None]
  - PYREXIA [None]
  - CYSTITIS [None]
  - DYSPNOEA [None]
  - LUNG INFECTION [None]
